FAERS Safety Report 15808254 (Version 3)
Quarter: 2019Q2

REPORT INFORMATION
  Report Type: Spontaneous
  Country: US (occurrence: US)
  Receive Date: 20190110
  Receipt Date: 20190529
  Transmission Date: 20190711
  Serious: No
  Sender: FDA-Public Use
  Company Number: US-PFIZER INC-2019009742

PATIENT
  Age: 49 Year
  Sex: Female
  Weight: 78 kg

DRUGS (5)
  1. LYRICA [Suspect]
     Active Substance: PREGABALIN
     Indication: PARAESTHESIA
  2. LYRICA [Suspect]
     Active Substance: PREGABALIN
     Indication: PAIN
     Dosage: 100 MG, 4X/DAY
     Route: 048
     Dates: start: 20190522
  3. LYRICA [Suspect]
     Active Substance: PREGABALIN
     Indication: BURNING SENSATION
  4. LYRICA [Suspect]
     Active Substance: PREGABALIN
     Indication: NERVE INJURY
     Dosage: 100 MG, 3X/DAY
     Route: 048
  5. LYRICA [Suspect]
     Active Substance: PREGABALIN
     Indication: NEUROPATHY PERIPHERAL
     Dosage: 100 MG, 4X/DAY
     Dates: start: 20190103

REACTIONS (6)
  - Mood altered [Unknown]
  - Irritability [Unknown]
  - Off label use [Unknown]
  - Therapeutic product effect incomplete [Unknown]
  - Gait disturbance [Unknown]
  - Product use issue [Unknown]
